FAERS Safety Report 9367314 (Version 1)
Quarter: 2013Q2

REPORT INFORMATION
  Report Type: Spontaneous
  Country: US (occurrence: US)
  Receive Date: 20130625
  Receipt Date: 20130625
  Transmission Date: 20140414
  Serious: No
  Sender: FDA-Public Use
  Company Number: US-009507513-1306USA010364

PATIENT
  Age: 55 Year
  Sex: Male

DRUGS (5)
  1. SAPHRIS [Suspect]
     Indication: BIPOLAR I DISORDER
     Dosage: 10 MG, BID
     Route: 060
     Dates: start: 201212, end: 201212
  2. SAPHRIS [Suspect]
     Dosage: 10 MG, BID
     Route: 060
     Dates: start: 201303, end: 201303
  3. LITHIUM [Concomitant]
  4. AMBIEN [Concomitant]
  5. EFFEXOR [Concomitant]

REACTIONS (1)
  - Mouth ulceration [Recovering/Resolving]
